FAERS Safety Report 8009967-6 (Version None)
Quarter: 2011Q4

REPORT INFORMATION
  Report Type: 
  Country: None (occurrence: None)
  Receive Date: 20111228
  Receipt Date: 20111223
  Transmission Date: 20120403
  Serious: Yes (Death, Hospitalization)
  Sender: FDA-Public Use
  Company Number: PHHY2011CA58264

PATIENT
  Sex: Male

DRUGS (1)
  1. SANDOSTATIN LAR [Suspect]
     Indication: COLON CANCER
     Dosage: 20 MG, EVERY 4 WEEKS
     Route: 030
     Dates: start: 20110327, end: 20110914

REACTIONS (8)
  - ABDOMINAL PAIN [None]
  - CONSTIPATION [None]
  - INTESTINAL OBSTRUCTION [None]
  - FATIGUE [None]
  - FLATULENCE [None]
  - ABDOMINAL DISTENSION [None]
  - ASTHENIA [None]
  - COLON CANCER METASTATIC [None]
